FAERS Safety Report 9457865 (Version 1)
Quarter: 2013Q3

REPORT INFORMATION
  Report Type: Spontaneous
  Country: IT (occurrence: None)
  Receive Date: 20130812
  Receipt Date: 20130812
  Transmission Date: 20140515
  Serious: Yes (Hospitalization)
  Sender: FDA-Public Use
  Company Number: AG-2012-0949

PATIENT
  Age: 81 Year
  Sex: Male

DRUGS (3)
  1. LEUKERAN [Suspect]
     Indication: NON-HODGKIN^S LYMPHOMA
     Route: 048
     Dates: start: 20111114, end: 20111119
  2. ALLOPURINOL [Suspect]
     Indication: RENAL FAILURE CHRONIC
     Dates: start: 20111110, end: 20111120
  3. COUMADIN [Suspect]
     Indication: THROMBOSIS PROPHYLAXIS
     Dates: start: 20090101, end: 20111120

REACTIONS (2)
  - Erythema [None]
  - Petechiae [None]
